FAERS Safety Report 8963222 (Version 2)
Quarter: 2013Q1

REPORT INFORMATION
  Report Type: Report from Study
  Country: None (occurrence: DE)
  Receive Date: 20121214
  Receipt Date: 20130103
  Transmission Date: 20140127
  Serious: Yes (Other)
  Sender: FDA-Public Use
  Company Number: DE-ROCHE-1165451

PATIENT
  Age: 41 Year
  Sex: Male
  Weight: 83 kg

DRUGS (4)
  1. PEG-INTERFERON ALFA 2A [Suspect]
     Indication: HEPATITIS C
     Route: 065
     Dates: start: 20060109, end: 20060116
  2. RIBAVIRIN [Suspect]
     Indication: HEPATITIS C
     Route: 065
     Dates: start: 20060109, end: 20060116
  3. RIBAVIRIN [Suspect]
     Route: 065
     Dates: start: 20050129, end: 20050517
  4. L-POLAMIDON [Concomitant]
     Route: 065
     Dates: start: 19980101

REACTIONS (6)
  - Drug ineffective [Unknown]
  - Varices oesophageal [Unknown]
  - Hepatic failure [Unknown]
  - Hepatic encephalopathy [Unknown]
  - Hepatic cirrhosis [Unknown]
  - Splenomegaly [Unknown]
